FAERS Safety Report 5087632-5 (Version None)
Quarter: 2006Q3

REPORT INFORMATION
  Report Type: 
  Country: None (occurrence: None)
  Receive Date: 20060727
  Receipt Date: 20060405
  Transmission Date: 20061208
  Serious: Yes (Other)
  Sender: FDA-Public Use
  Company Number: 2006049262

PATIENT
  Age: 54 Year
  Sex: Female
  Weight: 72.5755 kg

DRUGS (5)
  1. LYRICA [Suspect]
     Indication: FIBROMYALGIA
     Dosage: 150 MG (75 MG, 2 IN 1 D), ORAL
     Route: 048
     Dates: start: 20060331
  2. ANTIHYPERTENSIVES [Concomitant]
  3. ATENOLOL [Concomitant]
  4. DYAZIDE [Concomitant]
  5. DRUG, UNSPECIFIED [Concomitant]

REACTIONS (1)
  - BALANCE DISORDER [None]
